FAERS Safety Report 13007483 (Version 1)
Quarter: 2016Q4

REPORT INFORMATION
  Report Type: Spontaneous
  Country: US (occurrence: US)
  Receive Date: 20161207
  Receipt Date: 20161207
  Transmission Date: 20170207
  Serious: No
  Sender: FDA-Public Use
  Company Number: US-AQUA PHARMACEUTICALS-2016AQU000194

PATIENT
  Age: 16 Year
  Sex: Female

DRUGS (2)
  1. ACTICLATE [Concomitant]
     Active Substance: DOXYCYCLINE HYCLATE
     Indication: ACNE
     Dosage: UNK, ONCE
     Dates: start: 20160711, end: 20160711
  2. VELTIN [Suspect]
     Active Substance: CLINDAMYCIN PHOSPHATE\TRETINOIN
     Indication: ACNE
     Dosage: UNK, QD AT BEDTIME
     Route: 061
     Dates: start: 20160711, end: 20160711

REACTIONS (3)
  - Facial pain [Not Recovered/Not Resolved]
  - Skin exfoliation [Not Recovered/Not Resolved]
  - Erythema [Not Recovered/Not Resolved]

NARRATIVE: CASE EVENT DATE: 20160712
